FAERS Safety Report 5779132-1 (Version None)
Quarter: 2008Q2

REPORT INFORMATION
  Report Type: 
  Country: None (occurrence: None)
  Receive Date: 20080619
  Receipt Date: 20080610
  Transmission Date: 20081010
  Serious: Yes (Hospitalization)
  Sender: FDA-Public Use
  Company Number: FR-WYE-H04426308

PATIENT
  Age: 55 Year
  Sex: Female

DRUGS (2)
  1. EFFEXOR [Suspect]
     Dosage: UNSPECIFIED
  2. PROPRANOLOL [Interacting]
     Dosage: UNSPECIFIED

REACTIONS (3)
  - ACUTE RESPIRATORY FAILURE [None]
  - DRUG INTERACTION [None]
  - PNEUMONITIS [None]
